FAERS Safety Report 19207453 (Version 2)
Quarter: 2021Q2

REPORT INFORMATION
  Report Type: Spontaneous
  Country: US (occurrence: US)
  Receive Date: 20210503
  Receipt Date: 20210609
  Transmission Date: 20210717
  Serious: No
  Sender: FDA-Public Use
  Company Number: US-PFIZER INC-2021153843

PATIENT
  Age: 73 Year
  Sex: Male
  Weight: 79.82 kg

DRUGS (1)
  1. VYNDAMAX [Suspect]
     Active Substance: TAFAMIDIS
     Indication: CARDIAC AMYLOIDOSIS
     Dosage: 61 MG, 1X/DAY
     Dates: start: 20201115

REACTIONS (2)
  - Drug ineffective [Unknown]
  - Dyspnoea [Recovering/Resolving]
